FAERS Safety Report 4286548-1 (Version None)
Quarter: 2004Q1

REPORT INFORMATION
  Report Type: 
  Country: None (occurrence: None)
  Receive Date: 20040204
  Receipt Date: 20040130
  Transmission Date: 20041129
  Serious: Yes (Hospitalization)
  Sender: FDA-Public Use
  Company Number: 200311344BVD

PATIENT
  Age: 63 Year
  Sex: Female
  Weight: 53.2 kg

DRUGS (6)
  1. AVELOX [Suspect]
     Indication: PNEUMONIA
     Dosage: 400 MG, TOTAL DAILY, ORAL
     Route: 048
     Dates: start: 20030625, end: 20030701
  2. EDRONAX (REBOXETINE) [Suspect]
     Dosage: 4 MG, TOTAL DAILY,
     Dates: start: 20030625, end: 20030701
  3. TENORMIN [Concomitant]
  4. CLORAZEPATE DIPOTASSIUM [Concomitant]
  5. RISPERDAL [Concomitant]
  6. EUNERPAN [Concomitant]

REACTIONS (8)
  - ATRIOVENTRICULAR BLOCK COMPLETE [None]
  - ATRIOVENTRICULAR BLOCK SECOND DEGREE [None]
  - BRADYCARDIA [None]
  - DIZZINESS [None]
  - DYSPNOEA [None]
  - ELECTROCARDIOGRAM ABNORMAL [None]
  - HYPOTENSION [None]
  - OEDEMA PERIPHERAL [None]
